FAERS Safety Report 14459650 (Version 1)
Quarter: 2018Q1

REPORT INFORMATION
  Report Type: Spontaneous
  Country: FR (occurrence: FR)
  Receive Date: 20180130
  Receipt Date: 20180130
  Transmission Date: 20180509
  Serious: Yes (Hospitalization)
  Sender: FDA-Public Use
  Company Number: FR-CONCORDIA PHARMACEUTICALS INC.-GSH201801-000395

PATIENT
  Age: 46 Year
  Sex: Female

DRUGS (4)
  1. PLAQUENIL [Suspect]
     Active Substance: HYDROXYCHLOROQUINE SULFATE
     Indication: DERMATITIS BULLOUS
     Route: 048
     Dates: start: 201710, end: 20171211
  2. METOJECT [Concomitant]
     Active Substance: METHOTREXATE SODIUM
  3. LEVOTHYROX [Concomitant]
     Active Substance: LEVOTHYROXINE
  4. SPECIAFOLDINE [Concomitant]
     Active Substance: FOLIC ACID

REACTIONS (3)
  - Accommodation disorder [Not Recovered/Not Resolved]
  - Diarrhoea [Not Recovered/Not Resolved]
  - Purpura [Not Recovered/Not Resolved]

NARRATIVE: CASE EVENT DATE: 201710
